FAERS Safety Report 14379040 (Version 3)
Quarter: 2020Q4

REPORT INFORMATION
  Report Type: Spontaneous
  Country: US (occurrence: US)
  Receive Date: 20180112
  Receipt Date: 20201218
  Transmission Date: 20210113
  Serious: Yes (Hospitalization, Disabling, Other)
  Sender: FDA-Public Use
  Company Number: US-TEVA-2018-US-844679

PATIENT
  Age: 48 Year
  Sex: Female

DRUGS (19)
  1. TAXOTERE [Suspect]
     Active Substance: DOCETAXEL
     Indication: INVASIVE DUCTAL BREAST CARCINOMA
     Route: 065
     Dates: start: 20140116, end: 20140418
  2. HERCEPTIN [Suspect]
     Active Substance: TRASTUZUMAB
     Indication: INVASIVE DUCTAL BREAST CARCINOMA
     Dosage: DOSAGE: 680.4 MG; NUMBER OF CYCLES: 06; FREQUENCY: EVERY THREE WEEKS
     Route: 042
     Dates: start: 20140116, end: 20150428
  3. NORVASC [Concomitant]
     Active Substance: AMLODIPINE BESYLATE
     Indication: HYPERTENSION
     Dosage: 5 MILLIGRAM DAILY;
     Route: 048
  4. EFFEXOR XR [Concomitant]
     Active Substance: VENLAFAXINE HYDROCHLORIDE
     Indication: HYPERTENSION
     Dosage: 75 MILLIGRAM DAILY;
     Route: 048
     Dates: start: 20150204, end: 20150603
  5. DOCETAXEL SAGENT [Suspect]
     Active Substance: DOCETAXEL
     Indication: INVASIVE DUCTAL BREAST CARCINOMA
     Route: 065
     Dates: start: 20140116, end: 20150428
  6. KLONOPIN [Concomitant]
     Active Substance: CLONAZEPAM
     Indication: ANXIETY
     Dosage: 1 MILLIGRAM DAILY;
     Route: 048
     Dates: start: 20150204, end: 20150603
  7. EFFEXOR XR [Concomitant]
     Active Substance: VENLAFAXINE HYDROCHLORIDE
     Indication: DEPRESSION
     Dosage: 75 MILLIGRAM DAILY;
     Route: 048
     Dates: start: 20150527, end: 20150923
  8. NEURONTIN [Concomitant]
     Active Substance: GABAPENTIN
     Dosage: 900 MILLIGRAM DAILY;
     Route: 048
     Dates: start: 20140505, end: 20140604
  9. CARBOPLATIN. [Suspect]
     Active Substance: CARBOPLATIN
     Indication: INVASIVE DUCTAL BREAST CARCINOMA
     Dosage: DOSAGE: UNKNOWN; NUMBER OF CYCLES: 06; FREQUENCY: EVERY THREE WEEKS
     Route: 065
  10. ATENOLOL. [Concomitant]
     Active Substance: ATENOLOL
     Indication: HYPERTENSION
     Dosage: 25 MILLIGRAM DAILY;
     Route: 048
  11. EFFEXOR XR [Concomitant]
     Active Substance: VENLAFAXINE HYDROCHLORIDE
     Dosage: 300 MILLIGRAM DAILY;
     Route: 048
     Dates: start: 20161219, end: 20180213
  12. PERTUZUMAB. [Suspect]
     Active Substance: PERTUZUMAB
     Indication: INVASIVE DUCTAL BREAST CARCINOMA
     Dosage: DOSAGE: 420 MG; NUMBER OF CYCLES: 06; FREQUENCY: EVERY THREE WEEKS
     Route: 042
     Dates: start: 20140116, end: 20150428
  13. GLUCOPHAGE XR [Concomitant]
     Active Substance: METFORMIN HYDROCHLORIDE
     Indication: POLYCYSTIC OVARIES
     Dosage: 1000 MILLIGRAM DAILY;
     Route: 048
     Dates: start: 2003
  14. MICARDIS [Concomitant]
     Active Substance: TELMISARTAN
     Indication: HYPERTENSION
     Dosage: 40 MILLIGRAM DAILY;
     Route: 048
  15. DOCETAXEL SANOFI-AVENTIS [Suspect]
     Active Substance: DOCETAXEL
     Indication: INVASIVE DUCTAL BREAST CARCINOMA
     Dosage: DOSAGE: UNKNOWN; NUMBER OF CYCLES: 06; FREQUENCY: EVERY THREE WEEKS
     Route: 065
     Dates: start: 20140116, end: 20150428
  16. HYDROCHLOROTHIAZIDE. [Concomitant]
     Active Substance: HYDROCHLOROTHIAZIDE
     Indication: HYPERTENSION
     Dosage: 25 MILLIGRAM DAILY;
     Route: 048
  17. NOLVADEX [Suspect]
     Active Substance: TAMOXIFEN CITRATE
     Indication: INVASIVE DUCTAL BREAST CARCINOMA
     Dosage: 20 MILLIGRAM DAILY;
     Route: 048
     Dates: start: 20140701, end: 20171227
  18. NOLVADEX [Suspect]
     Active Substance: TAMOXIFEN CITRATE
     Dosage: 20 MILLIGRAM DAILY;
     Route: 048
     Dates: start: 20180406
  19. DOCETAXEL ACCORD [Suspect]
     Active Substance: DOCETAXEL
     Indication: INVASIVE DUCTAL BREAST CARCINOMA
     Dosage: DOSAGE: UNKNOWN; NUMBER OF CYCLES: 06; FREQUENCY: EVERY THREE WEEKS
     Route: 065
     Dates: start: 20140116, end: 20150428

REACTIONS (18)
  - Hair texture abnormal [Not Recovered/Not Resolved]
  - Onychomycosis [Recovering/Resolving]
  - Toxic erythema of chemotherapy [Recovered/Resolved]
  - Hair colour changes [Not Recovered/Not Resolved]
  - Amenorrhoea [Unknown]
  - Rash [Recovered/Resolved]
  - Madarosis [Not Recovered/Not Resolved]
  - Diarrhoea [Recovered/Resolved]
  - Neuropathy peripheral [Recovered/Resolved]
  - Endometrial hyperplasia [Unknown]
  - Hot flush [Recovered/Resolved]
  - Arthralgia [Recovered/Resolved]
  - Alopecia areata [Not Recovered/Not Resolved]
  - Chest discomfort [Recovered/Resolved]
  - Skin lesion [Recovering/Resolving]
  - Skin toxicity [Unknown]
  - Stomatitis [Recovering/Resolving]
  - Nausea [Recovered/Resolved]

NARRATIVE: CASE EVENT DATE: 2014
